FAERS Safety Report 26155672 (Version 1)
Quarter: 2025Q4

REPORT INFORMATION
  Report Type: Spontaneous
  Country: IR (occurrence: IR)
  Receive Date: 20251215
  Receipt Date: 20251215
  Transmission Date: 20260118
  Serious: No
  Sender: ALKEM
  Company Number: IR-ALKEM LABORATORIES LIMITED-IR-ALKEM-2024-25592

PATIENT
  Age: 19 Year
  Sex: Female

DRUGS (2)
  1. TACROLIMUS [Suspect]
     Active Substance: TACROLIMUS
     Indication: Pruritus
     Dosage: UNK (EVERY 20 DAYS)
     Route: 048
  2. TACROLIMUS [Suspect]
     Active Substance: TACROLIMUS
     Indication: Oxygen saturation decreased
     Dosage: UNK (TAPERED DOSE)
     Route: 048

REACTIONS (1)
  - Adverse drug reaction [Unknown]
